FAERS Safety Report 25481161 (Version 1)
Quarter: 2025Q2

REPORT INFORMATION
  Report Type: Report from Study
  Country: US (occurrence: US)
  Receive Date: 20250626
  Receipt Date: 20250626
  Transmission Date: 20250716
  Serious: Yes (Other)
  Sender: TAKEDA
  Company Number: US-TAKEDA-2023TUS064199

PATIENT
  Sex: Female
  Weight: 78 kg

DRUGS (19)
  1. TEDUGLUTIDE [Suspect]
     Active Substance: TEDUGLUTIDE
     Indication: Short-bowel syndrome
     Dosage: 0.38 MILLILITER, QD
  2. TEDUGLUTIDE [Suspect]
     Active Substance: TEDUGLUTIDE
     Dosage: 0.3 MILLIGRAM, QD
  3. TEDUGLUTIDE [Suspect]
     Active Substance: TEDUGLUTIDE
     Dosage: 0.3 MILLIGRAM, QD
  4. TEDUGLUTIDE [Suspect]
     Active Substance: TEDUGLUTIDE
     Dosage: 3 MILLIGRAM, QD
  5. ASPIRIN [Concomitant]
     Active Substance: ASPIRIN
  6. CLOPIDOGREL [Concomitant]
     Active Substance: CLOPIDOGREL BISULFATE
  7. NITROGLYCERIN [Concomitant]
     Active Substance: NITROGLYCERIN
  8. LOSARTAN POTASSIUM [Concomitant]
     Active Substance: LOSARTAN POTASSIUM
  9. ACETAMINOPHEN\HYDROCODONE [Concomitant]
     Active Substance: ACETAMINOPHEN\HYDROCODONE
  10. ONDANSETRON [Concomitant]
     Active Substance: ONDANSETRON
  11. ONDANSETRON HYDROCHLORIDE [Concomitant]
     Active Substance: ONDANSETRON HYDROCHLORIDE
  12. ATROPINE\DIPHENOXYLATE [Concomitant]
     Active Substance: ATROPINE\DIPHENOXYLATE
  13. PREMARIN [Concomitant]
     Active Substance: ESTROGENS, CONJUGATED
  14. PANTOPRAZOLE SODIUM [Concomitant]
     Active Substance: PANTOPRAZOLE SODIUM
  15. ARMOUR THYROID [Concomitant]
     Active Substance: THYROID, PORCINE
  16. NARCAN [Concomitant]
     Active Substance: NALOXONE HYDROCHLORIDE
  17. MECLIZINE HYDROCHLORIDE [Concomitant]
     Active Substance: MECLIZINE HYDROCHLORIDE
  18. CLONAZEPAM [Concomitant]
     Active Substance: CLONAZEPAM
  19. IRON [Concomitant]
     Active Substance: IRON

REACTIONS (16)
  - Nephrolithiasis [Unknown]
  - Stoma site haemorrhage [Unknown]
  - Stoma site oedema [Unknown]
  - Gastrointestinal stoma output abnormal [Unknown]
  - Malaise [Unknown]
  - Eye infection [Unknown]
  - Product dose omission issue [Unknown]
  - Inappropriate schedule of product administration [Unknown]
  - Dehydration [Unknown]
  - Back pain [Unknown]
  - Nausea [Unknown]
  - Abdominal distension [Unknown]
  - Dyspnoea [Unknown]
  - Decreased appetite [Unknown]
  - Abdominal pain upper [Unknown]
  - Abdominal pain [Unknown]
